FAERS Safety Report 21925583 (Version 1)
Quarter: 2023Q1

REPORT INFORMATION
  Report Type: Spontaneous
  Country: US (occurrence: US)
  Receive Date: 20230130
  Receipt Date: 20230130
  Transmission Date: 20230417
  Serious: No
  Sender: FDA-Public Use
  Company Number: US-SA-SAC20230125002229

PATIENT
  Sex: Male

DRUGS (7)
  1. DUPIXENT [Suspect]
     Active Substance: DUPILUMAB
     Indication: Dermatitis atopic
     Dosage: 300 MG, QOW
     Route: 058
  2. IRON [Concomitant]
     Active Substance: IRON
  3. PRAVASTATIN [Concomitant]
     Active Substance: PRAVASTATIN
  4. PREDNISONE [Concomitant]
     Active Substance: PREDNISONE
  5. TAMSULOSIN [Concomitant]
     Active Substance: TAMSULOSIN
  6. XARELTO [Concomitant]
     Active Substance: RIVAROXABAN
  7. LEVOTHYROXINE [Concomitant]
     Active Substance: LEVOTHYROXINE

REACTIONS (3)
  - Constipation [Unknown]
  - Separation anxiety disorder [Unknown]
  - Somnolence [Unknown]
